FAERS Safety Report 15572069 (Version 1)
Quarter: 2018Q4

REPORT INFORMATION
  Report Type: Spontaneous
  Country: US (occurrence: US)
  Receive Date: 20181031
  Receipt Date: 20181031
  Transmission Date: 20190205
  Serious: No
  Sender: FDA-Public Use
  Company Number: US-EMMAUS MEDICAL, INC.-EMM201809-000523

PATIENT
  Age: 53 Year
  Sex: Female
  Weight: 88.1 kg

DRUGS (3)
  1. PLAQUENIL [Concomitant]
     Active Substance: HYDROXYCHLOROQUINE SULFATE
     Indication: CONNECTIVE TISSUE DISORDER
  2. ENDARI [Suspect]
     Active Substance: GLUTAMINE
     Indication: SICKLE CELL DISEASE
     Route: 048
     Dates: start: 201806
  3. METHOTREXATE. [Concomitant]
     Active Substance: METHOTREXATE
     Indication: CONNECTIVE TISSUE DISORDER
     Dates: start: 201806, end: 201807

REACTIONS (2)
  - Hypotension [Recovering/Resolving]
  - Dehydration [Recovering/Resolving]
